FAERS Safety Report 19674480 (Version 1)
Quarter: 2021Q3

REPORT INFORMATION
  Report Type: Spontaneous
  Country: IN (occurrence: IN)
  Receive Date: 20210809
  Receipt Date: 20210809
  Transmission Date: 20211014
  Serious: No
  Sender: FDA-Public Use
  Company Number: IN-ALKEM-IN-ALKEM-2020-07973

PATIENT

DRUGS (1)
  1. ITRACONAZOLE. [Suspect]
     Active Substance: ITRACONAZOLE
     Indication: DERMATOPHYTOSIS
     Dosage: 200 MILLIGRAM, QD
     Route: 048

REACTIONS (1)
  - Transaminases increased [Recovering/Resolving]
